FAERS Safety Report 4730672-3 (Version None)
Quarter: 2005Q3

REPORT INFORMATION
  Report Type: 
  Country: None (occurrence: None)
  Receive Date: 20050725
  Receipt Date: 20050228
  Transmission Date: 20060218
  Serious: No
  Sender: FDA-Public Use
  Company Number: USA050391995

PATIENT
  Age: 7 Year
  Sex: Male
  Weight: 21 kg

DRUGS (3)
  1. STRATTERA [Suspect]
     Indication: ATTENTION DEFICIT/HYPERACTIVITY DISORDER
     Dosage: 40 MG DAY
     Dates: start: 20030101
  2. ADDERALL 30 [Concomitant]
  3. CONCERTA [Concomitant]

REACTIONS (3)
  - ANOREXIA [None]
  - DISTURBANCE IN ATTENTION [None]
  - WEIGHT GAIN POOR [None]
